FAERS Safety Report 10677482 (Version 1)
Quarter: 2014Q4

REPORT INFORMATION
  Report Type: Spontaneous
  Country: DE (occurrence: DE)
  Receive Date: 20141227
  Receipt Date: 20141227
  Transmission Date: 20150529
  Serious: Yes (Death, Other)
  Sender: FDA-Public Use
  Company Number: PHHY2014DE166456

PATIENT
  Age: 23 Year
  Sex: Male

DRUGS (4)
  1. DOCETAXEL. [Suspect]
     Active Substance: DOCETAXEL
     Indication: COLON CANCER
     Dosage: 100 MG/M2,ON DAY 8 EVERY 21 D
     Route: 065
  2. DOXORUBICIN [Suspect]
     Active Substance: DOXORUBICIN
     Indication: COLON CANCER
     Dosage: 75 MG/M2, UNK
     Route: 065
  3. IFOSFAMIDE. [Suspect]
     Active Substance: IFOSFAMIDE
     Indication: COLON CANCER
     Dosage: 5000 MG/M2, UNK
     Route: 065
  4. GEMCITABINE [Suspect]
     Active Substance: GEMCITABINE\GEMCITABINE HYDROCHLORIDE
     Indication: COLON CANCER
     Dosage: 900 MG/M2, ON DAYS 1 AND 8
     Route: 065

REACTIONS (3)
  - Haematotoxicity [Unknown]
  - Death [Fatal]
  - Drug ineffective [Unknown]
